FAERS Safety Report 4856082-6 (Version None)
Quarter: 2005Q4

REPORT INFORMATION
  Report Type: 
  Country: None (occurrence: None)
  Receive Date: 20051216
  Receipt Date: 20050506
  Transmission Date: 20060501
  Serious: Yes (Death, Other)
  Sender: FDA-Public Use
  Company Number: US-MERCK-0505USA00929

PATIENT
  Age: 70 Year
  Sex: Male
  Weight: 83 kg

DRUGS (8)
  1. VIOXX [Suspect]
     Indication: ARTHRITIS
     Route: 048
     Dates: start: 20000606, end: 20030502
  2. VIOXX [Suspect]
     Route: 048
  3. VIOXX [Suspect]
     Route: 048
  4. VIOXX [Suspect]
     Indication: SPINAL OSTEOARTHRITIS
     Route: 048
     Dates: start: 20000606, end: 20030502
  5. VIOXX [Suspect]
     Route: 048
  6. VIOXX [Suspect]
     Route: 048
  7. SKELAXIN [Concomitant]
     Route: 065
  8. ULTRAM [Concomitant]
     Route: 065

REACTIONS (16)
  - ABDOMINAL DISCOMFORT [None]
  - ACUTE MYOCARDIAL INFARCTION [None]
  - BULLOUS LUNG DISEASE [None]
  - CARDIOVASCULAR DISORDER [None]
  - CHILLS [None]
  - CONVULSION [None]
  - DIARRHOEA [None]
  - DRUG INEFFECTIVE [None]
  - FATIGUE [None]
  - FLATULENCE [None]
  - FUNGAL RASH [None]
  - HERNIA [None]
  - HYPERHIDROSIS [None]
  - MUSCULOSKELETAL DISCOMFORT [None]
  - SHOULDER PAIN [None]
  - WEIGHT DECREASED [None]
